FAERS Safety Report 4852779-2 (Version None)
Quarter: 2005Q4

REPORT INFORMATION
  Report Type: 
  Country: None (occurrence: None)
  Receive Date: 20051125
  Receipt Date: 20041005
  Transmission Date: 20060501
  Serious: Yes (Hospitalization)
  Sender: FDA-Public Use
  Company Number: 800156

PATIENT
  Age: 58 Year
  Sex: Male
  Weight: 82.5547 kg

DRUGS (23)
  1. DIANEAL [Suspect]
     Indication: PERITONEAL DIALYSIS
     Dosage: 14 L; EVERY DAY; IP
     Route: 033
     Dates: start: 20030301, end: 20041004
  2. NEPHROCAPS [Concomitant]
  3. CYSTAGON ^MYLAN^ [Concomitant]
  4. BAYER CHILDREN'S [Concomitant]
  5. ASPIRIN [Concomitant]
  6. MECLIZINE [Concomitant]
  7. ERYTHRO-TEVA [Concomitant]
  8. REGLAN [Concomitant]
  9. ATENOLOL [Concomitant]
  10. MARINOL [Concomitant]
  11. ULTRACET [Concomitant]
  12. TUMS [Concomitant]
  13. INSULIN BASAL [Concomitant]
  14. INSULIN HUMULUS [Concomitant]
  15. PHENYTOIN [Concomitant]
  16. IRON SULFATETHIAMIN COMPOUND TAB [Concomitant]
  17. VICODIN [Concomitant]
  18. LOPERAMIDE [Concomitant]
  19. ARANESP [Concomitant]
  20. CARBAMAZEPINE [Concomitant]
  21. PRAVACHOL [Concomitant]
  22. SENOKOT [Concomitant]
  23. NIFEREX [Concomitant]

REACTIONS (4)
  - CANDIDURIA [None]
  - CATHETER RELATED COMPLICATION [None]
  - PERITONITIS BACTERIAL [None]
  - STAPHYLOCOCCAL INFECTION [None]
